FAERS Safety Report 8772389 (Version 2)
Quarter: 2012Q4

REPORT INFORMATION
  Report Type: 
  Country: US (occurrence: US)
  Receive Date: 20120906
  Receipt Date: 20121025
  Transmission Date: 20130627
  Serious: Yes (Death, Life-Threatening, Hospitalization)
  Sender: FDA-Public Use
  Company Number: US-009507513-1209USA001191

PATIENT
  Sex: Female

DRUGS (2)
  1. SAPHRIS [Suspect]
     Indication: BIPOLAR DISORDER
     Route: 060
  2. SAPHRIS [Suspect]
     Indication: SUBSTANCE ABUSE

REACTIONS (1)
  - Completed suicide [Fatal]
